FAERS Safety Report 17893504 (Version 5)
Quarter: 2021Q2

REPORT INFORMATION
  Report Type: Report from Study
  Country: US (occurrence: US)
  Receive Date: 20200615
  Receipt Date: 20210504
  Transmission Date: 20210717
  Serious: Yes (Other)
  Sender: FDA-Public Use
  Company Number: NVSC2020US165730

PATIENT
  Age: 54 Year
  Sex: Female

DRUGS (3)
  1. GILENYA [Suspect]
     Active Substance: FINGOLIMOD HYDROCHLORIDE
     Indication: MULTIPLE SCLEROSIS
     Dosage: 0.5 MG, QD
     Route: 048
     Dates: start: 20200608
  2. GILENYA [Suspect]
     Active Substance: FINGOLIMOD HYDROCHLORIDE
     Dosage: 0.5 MG, QD
     Route: 048
     Dates: start: 20200610, end: 20200612
  3. GILENYA [Suspect]
     Active Substance: FINGOLIMOD HYDROCHLORIDE
     Dosage: 0.5 MG, QD
     Route: 048

REACTIONS (8)
  - Heart rate increased [Unknown]
  - Constipation [Unknown]
  - Angina pectoris [Unknown]
  - Fatigue [Recovered/Resolved]
  - Fatigue [Unknown]
  - Hypertension [Unknown]
  - Chest discomfort [Unknown]
  - Accident [Unknown]

NARRATIVE: CASE EVENT DATE: 20200610
